FAERS Safety Report 8329232-7 (Version None)
Quarter: 2012Q2

REPORT INFORMATION
  Report Type: 
  Country: None (occurrence: None)
  Receive Date: 20120502
  Receipt Date: 20120427
  Transmission Date: 20120825
  Serious: Yes (Hospitalization)
  Sender: FDA-Public Use
  Company Number: FR-SANOFI-AVENTIS-2012SA029777

PATIENT
  Age: 52 Year
  Sex: Female

DRUGS (4)
  1. ELOXATIN [Suspect]
     Indication: OVARIAN CANCER RECURRENT
     Route: 041
     Dates: start: 20120215, end: 20120215
  2. GEMZAR [Suspect]
     Indication: OVARIAN CANCER RECURRENT
     Route: 041
     Dates: start: 20120215, end: 20120215
  3. METHYLPREDNISOLONE [Suspect]
     Indication: PREMEDICATION
     Route: 042
     Dates: start: 20120215, end: 20120215
  4. ZOFRAN [Suspect]
     Indication: PREMEDICATION
     Route: 042
     Dates: start: 20120215, end: 20120215

REACTIONS (1)
  - RESPIRATORY DISTRESS [None]
